FAERS Safety Report 21061943 (Version 1)
Quarter: 2022Q3

REPORT INFORMATION
  Report Type: Spontaneous
  Country: US (occurrence: US)
  Receive Date: 20220710
  Receipt Date: 20220710
  Transmission Date: 20221027
  Serious: No
  Sender: FDA-Public Use
  Company Number: US-JNJFOC-20220704142

PATIENT
  Age: 77 Year
  Sex: Female

DRUGS (1)
  1. TREMFYA [Suspect]
     Active Substance: GUSELKUMAB
     Indication: Psoriasis
     Route: 058

REACTIONS (2)
  - Headache [Recovering/Resolving]
  - Tooth extraction [Recovering/Resolving]

NARRATIVE: CASE EVENT DATE: 20220630
